FAERS Safety Report 6491809-1 (Version None)
Quarter: 2009Q4

REPORT INFORMATION
  Report Type: 
  Country: None (occurrence: None)
  Receive Date: 20091210
  Receipt Date: 20091124
  Transmission Date: 20100525
  Serious: Yes (Other)
  Sender: FDA-Public Use
  Company Number: IMP_04581_2009

PATIENT
  Sex: Female
  Weight: 111.1766 kg

DRUGS (20)
  1. PRIMIDONE [Suspect]
     Indication: EPILEPSY
     Dosage: (DF - DISCREPANCY NOTED WITH DOSING ORAL) ; (DF)
     Route: 048
     Dates: start: 19651201, end: 19811101
  2. PRIMIDONE [Suspect]
     Indication: EPILEPSY
     Dosage: (DF - DISCREPANCY NOTED WITH DOSING ORAL) ; (DF)
     Route: 048
     Dates: start: 20010101
  3. ADVAIR HFA [Suspect]
     Indication: ASTHMA
     Dosage: (2 PUFFS TWICE PER DAY / INHALED)
     Dates: start: 20081101, end: 20090531
  4. ADVAIR HFA [Suspect]
     Indication: BRONCHITIS
     Dosage: (2 PUFFS TWICE PER DAY / INHALED)
     Dates: start: 20081101, end: 20090531
  5. LEVOSALBUTAMOL [Concomitant]
  6. SUCRALFATE [Concomitant]
  7. MICONAZOLE [Concomitant]
  8. LITHIUM [Concomitant]
  9. BUSPIRONE HCL [Concomitant]
  10. WELLBUTRIN [Concomitant]
  11. METFORMIN HYDROCHLORIDE [Concomitant]
  12. LITHIUM CARBONATE [Concomitant]
  13. ESTRADIOL [Concomitant]
  14. DICYCLOMINE HYDROCHLORIDE [Concomitant]
  15. ELETRIPTAN HYDROBROMIDE [Concomitant]
  16. LANSOPRAZOLE [Concomitant]
  17. BUPROPION HYDROCHLORIDE [Concomitant]
  18. CLOTRIMAZOLE [Concomitant]
  19. MICONAZOLE [Concomitant]
  20. PAXIL [Concomitant]

REACTIONS (11)
  - ASTHMA [None]
  - BLINDNESS TRANSIENT [None]
  - DEAFNESS TRANSITORY [None]
  - DRUG HYPERSENSITIVITY [None]
  - ERYTHEMA [None]
  - FACE OEDEMA [None]
  - FEELING ABNORMAL [None]
  - HYPERACUSIS [None]
  - HYPOACUSIS [None]
  - LOSS OF CONSCIOUSNESS [None]
  - PRURITUS [None]
